FAERS Safety Report 9396776 (Version 1)
Quarter: 2013Q3

REPORT INFORMATION
  Report Type: Report from Study
  Country: BR (occurrence: BR)
  Receive Date: 20130712
  Receipt Date: 20130712
  Transmission Date: 20140515
  Serious: Yes (Other)
  Sender: FDA-Public Use
  Company Number: BR-ROCHE-1245200

PATIENT
  Sex: Female
  Weight: 52 kg

DRUGS (2)
  1. RIBAVIRIN [Suspect]
     Indication: HEPATITIS C
     Route: 065
     Dates: start: 2009
  2. INTERFERON ALFA-2A [Suspect]
     Indication: HEPATITIS C
     Route: 065
     Dates: start: 2009

REACTIONS (4)
  - Emphysema [Unknown]
  - Weight decreased [Unknown]
  - Renal disorder [Unknown]
  - Immunodeficiency [Unknown]
